FAERS Safety Report 7685284-9 (Version None)
Quarter: 2011Q3

REPORT INFORMATION
  Report Type: 
  Country: None (occurrence: None)
  Receive Date: 20110816
  Receipt Date: 20110804
  Transmission Date: 20111222
  Serious: Yes (Hospitalization)
  Sender: FDA-Public Use
  Company Number: GB-US-EMD SERONO, INC.-7075353

PATIENT
  Sex: Female

DRUGS (1)
  1. REBIF [Suspect]
     Indication: PRODUCT USED FOR UNKNOWN INDICATION
     Route: 058
     Dates: start: 20080101

REACTIONS (6)
  - HEAD DISCOMFORT [None]
  - SENSATION OF HEAVINESS [None]
  - TRIGEMINAL NEURALGIA [None]
  - NAUSEA [None]
  - MUSCULAR WEAKNESS [None]
  - INFLUENZA LIKE ILLNESS [None]
